FAERS Safety Report 24272542 (Version 1)
Quarter: 2024Q3

REPORT INFORMATION
  Report Type: Spontaneous
  Country: FR (occurrence: FR)
  Receive Date: 20240902
  Receipt Date: 20240902
  Transmission Date: 20241016
  Serious: Yes (Disabling)
  Sender: AUROBINDO
  Company Number: FR-AFSSAPS-NY2024000941

PATIENT
  Age: 53 Year
  Sex: Male
  Weight: 64.7 kg

DRUGS (41)
  1. VORICONAZOLE [Suspect]
     Active Substance: VORICONAZOLE
     Indication: Opportunistic infection prophylaxis
     Dosage: 300 MILLIGRAM, TWO TIMES A DAY
     Route: 042
     Dates: start: 20231228, end: 20240122
  2. VORICONAZOLE [Suspect]
     Active Substance: VORICONAZOLE
     Dosage: 260 MILLIGRAM, TWO TIMES A DAY
     Route: 042
     Dates: start: 20231130, end: 20231228
  3. VORICONAZOLE [Suspect]
     Active Substance: VORICONAZOLE
     Dosage: 400 MILLIGRAM, TWO TIMES A DAY
     Route: 042
     Dates: start: 20231129, end: 20231130
  4. FUROSEMIDE SODIUM [Suspect]
     Active Substance: FUROSEMIDE SODIUM
     Indication: Hypervolaemia
     Dosage: 120 MILLIGRAM, ONCE A DAY
     Route: 042
     Dates: start: 20231203, end: 20231203
  5. FUROSEMIDE SODIUM [Suspect]
     Active Substance: FUROSEMIDE SODIUM
     Dosage: 40 MILLIGRAM, ONCE A DAY
     Route: 042
     Dates: start: 20231206, end: 20231207
  6. FUROSEMIDE SODIUM [Suspect]
     Active Substance: FUROSEMIDE SODIUM
     Dosage: 20 MILLIGRAM, ONCE A DAY
     Route: 042
     Dates: start: 20231208, end: 20231212
  7. FUROSEMIDE SODIUM [Suspect]
     Active Substance: FUROSEMIDE SODIUM
     Dosage: 40 MILLIGRAM, ONCE A DAY
     Route: 042
     Dates: start: 20231214, end: 20231214
  8. FUROSEMIDE SODIUM [Suspect]
     Active Substance: FUROSEMIDE SODIUM
     Dosage: 60 MILLIGRAM, ONCE A DAY
     Route: 042
     Dates: start: 20231215, end: 20231215
  9. FUROSEMIDE SODIUM [Suspect]
     Active Substance: FUROSEMIDE SODIUM
     Dosage: 100 MILLIGRAM, ONCE A DAY
     Route: 042
     Dates: start: 20231216, end: 20231218
  10. FUROSEMIDE SODIUM [Suspect]
     Active Substance: FUROSEMIDE SODIUM
     Dosage: 40 MILLIGRAM, ONCE A DAY
     Route: 042
     Dates: start: 20231220, end: 20231221
  11. FUROSEMIDE SODIUM [Suspect]
     Active Substance: FUROSEMIDE SODIUM
     Dosage: 20 MILLIGRAM, ONCE A DAY
     Route: 042
     Dates: start: 20231222, end: 20231224
  12. FUROSEMIDE SODIUM [Suspect]
     Active Substance: FUROSEMIDE SODIUM
     Dosage: 20 MILLIGRAM, ONCE A DAY
     Route: 042
     Dates: start: 20231226, end: 20231226
  13. FUROSEMIDE SODIUM [Suspect]
     Active Substance: FUROSEMIDE SODIUM
     Dosage: 20 MILLIGRAM, ONCE A DAY
     Route: 042
     Dates: start: 20240109, end: 20240109
  14. FUROSEMIDE SODIUM [Suspect]
     Active Substance: FUROSEMIDE SODIUM
     Dosage: 40 MILLIGRAM, ONCE A DAY
     Route: 042
     Dates: start: 20240111, end: 20240112
  15. FUROSEMIDE SODIUM [Suspect]
     Active Substance: FUROSEMIDE SODIUM
     Dosage: 20 MILLIGRAM, ONCE A DAY
     Route: 042
     Dates: start: 20240114, end: 20240119
  16. PHYTONADIONE [Concomitant]
     Active Substance: PHYTONADIONE
     Indication: Vitamin supplementation
     Dosage: 10 MILLIGRAM, ONCE A DAY
     Route: 042
     Dates: start: 20231206
  17. METHYLPREDNISOLONE [Concomitant]
     Active Substance: METHYLPREDNISOLONE
     Indication: Graft versus host disease
     Dosage: 40 MILLIGRAM, ONCE A DAY
     Route: 042
     Dates: start: 20231125
  18. Insuline asparte sanofi [Concomitant]
     Indication: Hyperglycaemia
     Dosage: 1 DOSAGE FORM
     Route: 042
     Dates: start: 20231213
  19. ACETAMINOPHEN [Concomitant]
     Active Substance: ACETAMINOPHEN
     Indication: Pain
     Dosage: 1 GRAM
     Route: 042
     Dates: start: 20231124
  20. Loxen [Concomitant]
     Indication: Hypertension
     Dosage: 20 MILLIGRAM
     Route: 048
     Dates: start: 20231206
  21. CHOLECALCIFEROL [Concomitant]
     Active Substance: CHOLECALCIFEROL
     Indication: Vitamin supplementation
     Dosage: 1 DOSAGE FORM, EVERY WEEK
     Route: 048
     Dates: start: 20240106
  22. RUXOLITINIB [Concomitant]
     Active Substance: RUXOLITINIB
     Indication: Graft versus host disease
     Dosage: 10 MILLIGRAM
     Route: 048
     Dates: start: 20231202
  23. PROGRAF [Concomitant]
     Active Substance: TACROLIMUS
     Indication: Graft versus host disease
     Dosage: 0.2 MILLIGRAM, ONCE A DAY
     Route: 042
     Dates: start: 20231229
  24. ONDANSETRON [Concomitant]
     Active Substance: ONDANSETRON
     Indication: Prophylaxis of nausea and vomiting
     Dosage: 24 MILLIGRAM, ONCE A DAY
     Route: 042
     Dates: start: 20231124
  25. URSODIOL [Concomitant]
     Active Substance: URSODIOL
     Indication: Graft versus host disease
     Dosage: 500 MILLIGRAM, 3 TIMES A DAY
     Route: 048
     Dates: start: 20231125
  26. MEROPENEM [Concomitant]
     Active Substance: MEROPENEM
     Indication: Enterococcal bacteraemia
     Dosage: 6 GRAM, ONCE A DAY
     Route: 042
     Dates: start: 20240107
  27. HUMATIN [Concomitant]
     Active Substance: PAROMOMYCIN SULFATE
     Indication: Cryptosporidiosis infection
     Dosage: 8 DOSAGE FORM, ONCE A DAY
     Route: 048
     Dates: start: 20231205
  28. GAVISCON [Concomitant]
     Active Substance: ALUMINUM HYDROXIDE\MAGNESIUM CARBONATE
     Indication: Graft versus host disease
     Dosage: 1 DOSAGE FORM
     Route: 048
     Dates: start: 20231129
  29. ACYCLOVIR [Concomitant]
     Active Substance: ACYCLOVIR
     Indication: Opportunistic infection prophylaxis
     Dosage: 330 MILLIGRAM, 3 TIMES A DAY
     Route: 042
     Dates: start: 20231129
  30. RETACRIT [Concomitant]
     Active Substance: EPOETIN ALFA-EPBX
     Indication: Anaemia
     Dosage: 30000 INTERNATIONAL UNIT, EVERY WEEK
     Route: 058
     Dates: start: 20231214
  31. PHLOROGLUCINOL\1,3,5-TRIMETHOXYBENZENE [Concomitant]
     Active Substance: PHLOROGLUCINOL\1,3,5-TRIMETHOXYBENZENE
     Indication: Graft versus host disease
     Dosage: 80 MILLIGRAM
     Route: 042
     Dates: start: 20231124
  32. ACUPAN [Concomitant]
     Active Substance: NEFOPAM HYDROCHLORIDE
     Indication: Pain
     Dosage: 20 MILLIGRAM
     Route: 042
     Dates: start: 20231127
  33. FILGRASTIM [Concomitant]
     Active Substance: FILGRASTIM
     Indication: Neutropenia
     Dosage: 30 MEGA-INTERNATIONAL UNIT, UNK
     Route: 058
     Dates: start: 20231211
  34. Racecadotril Arrow [Concomitant]
     Indication: Diarrhoea
     Dosage: 1 DOSAGE FORM, 3 TIMES A DAY
     Route: 048
     Dates: start: 20231124
  35. HEPARIN SODIUM [Concomitant]
     Active Substance: HEPARIN SODIUM
     Indication: Thrombosis prophylaxis
     Dosage: 6500 INTERNATIONAL UNIT, ONCE A DAY
     Route: 042
     Dates: start: 20231222
  36. MORPHINE HYDROCHLORIDE [Concomitant]
     Active Substance: MORPHINE HYDROCHLORIDE
     Indication: Cancer pain
     Dosage: 1 DOSAGE FORM
     Route: 042
     Dates: start: 20231206
  37. PANTOPRAZOLE SODIUM [Concomitant]
     Active Substance: PANTOPRAZOLE SODIUM
     Indication: Graft versus host disease
     Dosage: 40 MILLIGRAM, ONCE A DAY
     Route: 048
     Dates: start: 20231125
  38. VERAPAMIL HYDROCHLORIDE [Concomitant]
     Active Substance: VERAPAMIL HYDROCHLORIDE
     Indication: Hypertension
     Dosage: 5 MILLIGRAM, ONCE A DAY
     Route: 042
     Dates: start: 20231208
  39. MIDAZOLAM [Concomitant]
     Active Substance: MIDAZOLAM
     Indication: Sleep disorder
     Dosage: 1 DOSAGE FORM
     Route: 042
     Dates: start: 20231221
  40. MONTMORILLONITE [Concomitant]
     Active Substance: MONTMORILLONITE
     Indication: Diarrhoea
     Dosage: 1 DOSAGE FORM, 3 TIMES A DAY
     Route: 048
     Dates: start: 20231124
  41. Naloxone mylan [Concomitant]
     Indication: Drug toxicity prophylaxis
     Dosage: 1 DOSAGE FORM
     Route: 042
     Dates: start: 20231206

REACTIONS (1)
  - Neurosensory hypoacusis [Not Recovered/Not Resolved]

NARRATIVE: CASE EVENT DATE: 20240108
